FAERS Safety Report 6399245-3 (Version None)
Quarter: 2009Q4

REPORT INFORMATION
  Report Type: 
  Country: None (occurrence: None)
  Receive Date: 20091014
  Receipt Date: 20070702
  Transmission Date: 20100525
  Serious: Yes (Other)
  Sender: FDA-Public Use
  Company Number: US-ASTRAZENECA-2006UW24546

PATIENT
  Age: 49 Year
  Sex: Female
  Weight: 145.1 kg

DRUGS (13)
  1. SEROQUEL [Suspect]
     Indication: MAJOR DEPRESSION
     Dosage: 100 - 400 MG, AT NIGHT
     Route: 048
     Dates: start: 20000501
  2. SEROQUEL [Suspect]
     Indication: DEPRESSION
     Dosage: 100 - 400 MG, AT NIGHT
     Route: 048
     Dates: start: 20000501
  3. SEROQUEL [Suspect]
     Route: 048
     Dates: start: 20040101, end: 20061101
  4. SEROQUEL [Suspect]
     Route: 048
     Dates: start: 20040101, end: 20061101
  5. GEODON [Concomitant]
     Dates: end: 20060101
  6. ZYPREXA [Concomitant]
  7. AMBIEN [Concomitant]
  8. TRAZODONE [Concomitant]
  9. LIPITOR [Concomitant]
     Dates: start: 20041201
  10. ACCUPRIL [Concomitant]
     Indication: BLOOD PRESSURE
     Dates: start: 20041201
  11. SYNTHROID [Concomitant]
  12. EFFEXOR [Concomitant]
     Dates: start: 19940418
  13. ATIVAN [Concomitant]
     Indication: SLEEP DISORDER
     Dates: start: 19940418

REACTIONS (5)
  - DIABETES MELLITUS [None]
  - DIABETES MELLITUS INADEQUATE CONTROL [None]
  - DIABETIC GASTROPARESIS [None]
  - TYPE 1 DIABETES MELLITUS [None]
  - TYPE 2 DIABETES MELLITUS [None]
